FAERS Safety Report 10684482 (Version 1)
Quarter: 2014Q4

REPORT INFORMATION
  Report Type: Spontaneous
  Country: RU (occurrence: RU)
  Receive Date: 20141231
  Receipt Date: 20141231
  Transmission Date: 20150529
  Serious: Yes (Hospitalization, Other)
  Sender: FDA-Public Use
  Company Number: PHHY2014RU168878

PATIENT
  Sex: Female

DRUGS (4)
  1. PREDNISOLONE. [Concomitant]
     Active Substance: PREDNISOLONE
     Indication: PRODUCT USED FOR UNKNOWN INDICATION
     Route: 065
  2. PROGRAF [Concomitant]
     Active Substance: TACROLIMUS\TACROLIMUS ANHYDROUS
     Indication: PRODUCT USED FOR UNKNOWN INDICATION
     Route: 065
  3. CERTICAN [Suspect]
     Active Substance: EVEROLIMUS
     Dosage: UNK
     Route: 065
     Dates: start: 20140325, end: 20141212
  4. CERTICAN [Suspect]
     Active Substance: EVEROLIMUS
     Indication: INTESTINAL POLYP
     Dosage: UNK
     Route: 065
     Dates: start: 201308, end: 201308

REACTIONS (6)
  - Deep vein thrombosis [Recovering/Resolving]
  - Skin ulcer [Recovering/Resolving]
  - Bladder pain [Recovered/Resolved]
  - Oedema [Recovering/Resolving]
  - Thrombophlebitis [Recovering/Resolving]
  - Dysuria [Recovered/Resolved]

NARRATIVE: CASE EVENT DATE: 201308
